FAERS Safety Report 24094141 (Version 1)
Quarter: 2024Q3

REPORT INFORMATION
  Report Type: Spontaneous
  Country: ES (occurrence: ES)
  Receive Date: 20240716
  Receipt Date: 20240716
  Transmission Date: 20241017
  Serious: Yes (Hospitalization, Other)
  Sender: AUROBINDO
  Company Number: ES-AEMPS-1546377

PATIENT
  Age: 80 Year
  Sex: Male

DRUGS (6)
  1. ONDANSETRON [Suspect]
     Active Substance: ONDANSETRON
     Indication: Anaesthetic premedication
     Dosage: 8 MILLIGRAM, ONCE A DAY
     Route: 042
     Dates: start: 20240521, end: 20240522
  2. TRAMADOL [Suspect]
     Active Substance: TRAMADOL\TRAMADOL HYDROCHLORIDE
     Indication: Procedural pain
     Dosage: UNK
     Route: 042
     Dates: start: 20240521, end: 20240522
  3. METAMIZOL [Suspect]
     Active Substance: METAMIZOLE SODIUM
     Indication: Procedural pain
     Dosage: UNK
     Route: 042
     Dates: start: 20240521, end: 20240524
  4. TEICOPLANIN [Suspect]
     Active Substance: TEICOPLANIN
     Indication: Prophylaxis
     Dosage: 400 MILLIGRAM, ONCE A DAY
     Route: 042
     Dates: start: 20240521, end: 20240521
  5. CEFAZOLIN SODIUM [Suspect]
     Active Substance: CEFAZOLIN SODIUM
     Indication: Prophylaxis
     Dosage: 2 GRAM, ONCE A DAY
     Route: 042
     Dates: start: 20240521, end: 20240522
  6. ENOXAPARIN [Suspect]
     Active Substance: ENOXAPARIN
     Indication: Thrombosis prophylaxis
     Dosage: 4000 INTERNATIONAL UNIT, ONCE A DAY
     Route: 058
     Dates: start: 20240521, end: 20240524

REACTIONS (1)
  - Generalised bullous fixed drug eruption [Recovered/Resolved]

NARRATIVE: CASE EVENT DATE: 20240522
